FAERS Safety Report 8053584-9 (Version None)
Quarter: 2012Q1

REPORT INFORMATION
  Report Type: 
  Country: None (occurrence: None)
  Receive Date: 20120118
  Receipt Date: 20120106
  Transmission Date: 20120608
  Serious: Yes (Other)
  Sender: FDA-Public Use
  Company Number: PT-MERCK-1201PRT00002B1

PATIENT
  Sex: Female
  Weight: 1 kg

DRUGS (3)
  1. ETRAVIRINE [Concomitant]
     Route: 065
  2. TENOFOVIR DISOPROXIL FUMARATE [Concomitant]
     Route: 065
  3. ISENTRESS [Suspect]
     Route: 065

REACTIONS (2)
  - UNDERWEIGHT [None]
  - FOETAL EXPOSURE DURING PREGNANCY [None]
